FAERS Safety Report 5900941-X (Version None)
Quarter: 2008Q3

REPORT INFORMATION
  Report Type: 
  Country: None (occurrence: None)
  Receive Date: 20080929
  Receipt Date: 20080923
  Transmission Date: 20090109
  Serious: Yes (Other)
  Sender: FDA-Public Use
  Company Number: US-ELI_LILLY_AND_COMPANY-US200809005121

PATIENT
  Sex: Female

DRUGS (5)
  1. HUMALOG [Suspect]
     Dosage: UNK, UNK
     Dates: start: 20080730
  2. HUMALOG [Suspect]
     Dosage: UNK, UNK
     Dates: end: 20070101
  3. LANTUS [Concomitant]
  4. BYETTA [Concomitant]
  5. VITAMINS [Concomitant]

REACTIONS (5)
  - ASTHENIA [None]
  - BLOOD GLUCOSE FLUCTUATION [None]
  - CARCINOID TUMOUR PULMONARY [None]
  - PANCREATITIS [None]
  - PANCREATOLITHIASIS [None]
